FAERS Safety Report 9513075 (Version 1)
Quarter: 2013Q1

REPORT INFORMATION
  Report Type: Spontaneous
  Country: US (occurrence: None)
  Receive Date: 20130305
  Receipt Date: 20130305
  Transmission Date: 20140127
  Serious: Yes (Other)
  Sender: FDA-Public Use
  Company Number: 163-21880-12101015

PATIENT
  Age: 73 Year
  Sex: Male
  Weight: 97.52 kg

DRUGS (7)
  1. REVLIMID [Suspect]
     Indication: PLASMA CELL MYELOMA
     Dosage: 21 IN 21 D
     Route: 048
     Dates: start: 20120514
  2. VITAMIN D [Concomitant]
  3. ONE DAILY TABLET [Concomitant]
  4. GLUCOSAMINE AND CHONDROTIN [Concomitant]
  5. DIOVAN [Concomitant]
  6. COREG [Concomitant]
  7. CALCIUM [Concomitant]

REACTIONS (3)
  - Flatulence [None]
  - Tremor [None]
  - Diarrhoea [None]
